FAERS Safety Report 7020302-2 (Version None)
Quarter: 2010Q3

REPORT INFORMATION
  Report Type: 
  Country: None (occurrence: None)
  Receive Date: 20100929
  Receipt Date: 20100916
  Transmission Date: 20110219
  Serious: Yes (Hospitalization, Other)
  Sender: FDA-Public Use
  Company Number: GB-ELI_LILLY_AND_COMPANY-GB201009000948

PATIENT
  Age: 40 Year
  Sex: Male

DRUGS (5)
  1. ZYPREXA [Suspect]
  2. AMITRIPTYLINE [Concomitant]
     Indication: MAJOR DEPRESSION
     Dosage: 1.2 G, UNKNOWN
  3. AMITRIPTYLINE [Concomitant]
     Dosage: 1.2 G, UNKNOWN
  4. AMITRIPTYLINE [Concomitant]
     Dosage: 800 MG, UNKNOWN
  5. ALIMEMAZINE [Concomitant]

REACTIONS (11)
  - ABDOMINAL DISCOMFORT [None]
  - AGITATION [None]
  - ATELECTASIS [None]
  - ELECTROCARDIOGRAM ABNORMAL [None]
  - ELECTROCARDIOGRAM ST SEGMENT ELEVATION [None]
  - ELECTROCARDIOGRAM T WAVE INVERSION [None]
  - INTENTIONAL OVERDOSE [None]
  - MOANING [None]
  - NYSTAGMUS [None]
  - SINUS TACHYCARDIA [None]
  - TREMOR [None]
